FAERS Safety Report 4966783-7 (Version None)
Quarter: 2006Q2

REPORT INFORMATION
  Report Type: 
  Country: None (occurrence: None)
  Receive Date: 20060407
  Receipt Date: 20051004
  Transmission Date: 20061013
  Serious: Yes (Hospitalization)
  Sender: FDA-Public Use
  Company Number: US-MERCK-0510USA03550

PATIENT
  Age: 64 Year
  Sex: Female
  Weight: 70 kg

DRUGS (3)
  1. VIOXX [Suspect]
     Indication: ARTHRITIS
     Route: 048
     Dates: start: 20010301, end: 20040401
  2. VIOXX [Suspect]
     Indication: HEADACHE
     Route: 048
     Dates: start: 20010301, end: 20040401
  3. ASPIRIN [Concomitant]
     Route: 065

REACTIONS (1)
  - CORONARY ARTERY THROMBOSIS [None]
